FAERS Safety Report 18502319 (Version 1)
Quarter: 2020Q4

REPORT INFORMATION
  Report Type: Other
  Country: US (occurrence: US)
  Receive Date: 20201113
  Receipt Date: 20201113
  Transmission Date: 20210114
  Serious: No
  Sender: FDA-Public Use
  Company Number: US-LEADIANT BIOSCIENCES INC-2020STPI000021

PATIENT

DRUGS (17)
  1. ASPIRIN (E.C.) [Concomitant]
     Active Substance: ASPIRIN
  2. PROGRAF [Concomitant]
     Active Substance: TACROLIMUS
  3. ANDROGEL [Concomitant]
     Active Substance: TESTOSTERONE
  4. PROCYSBI [Concomitant]
     Active Substance: CYSTEAMINE BITARTRATE
  5. MAG OXIDE [Concomitant]
     Active Substance: MAGNESIUM OXIDE
  6. CYSTARAN [Suspect]
     Active Substance: CYSTEAMINE HYDROCHLORIDE
     Indication: CYSTINOSIS
     Dosage: 1 DROP, QH WHILE AWAKE
     Route: 047
     Dates: start: 20140902
  7. OMEPRAZOLE. [Concomitant]
     Active Substance: OMEPRAZOLE
  8. METOPROLOL TARTRATE. [Concomitant]
     Active Substance: METOPROLOL TARTRATE
  9. VITAMINS NOS [Concomitant]
     Active Substance: VITAMINS
  10. MYFORTIC [Concomitant]
     Active Substance: MYCOPHENOLATE SODIUM
  11. BACTRIM [Concomitant]
     Active Substance: SULFAMETHOXAZOLE\TRIMETHOPRIM
  12. STOOL SOFTENER (DOCUSATE) [Concomitant]
     Active Substance: DOCUSATE
  13. KEPPRA [Concomitant]
     Active Substance: LEVETIRACETAM
  14. SYNTHROID [Concomitant]
     Active Substance: LEVOTHYROXINE SODIUM
  15. PREDNISONE. [Concomitant]
     Active Substance: PREDNISONE
  16. NOVOLIN NOS [Concomitant]
     Active Substance: INSULIN HUMAN
  17. PEPCID [Concomitant]
     Active Substance: FAMOTIDINE

REACTIONS (1)
  - Eye irritation [Unknown]
